FAERS Safety Report 10035555 (Version 3)
Quarter: 2014Q2

REPORT INFORMATION
  Report Type: Spontaneous
  Country: US (occurrence: US)
  Receive Date: 20140325
  Receipt Date: 20140506
  Transmission Date: 20141212
  Serious: No
  Sender: FDA-Public Use
  Company Number: US-PFIZER INC-2014081982

PATIENT
  Age: 13 Year
  Sex: Male
  Weight: 34 kg

DRUGS (1)
  1. GENOTROPIN [Suspect]
     Indication: DWARFISM
     Dosage: 1.4 MG, DAILY
     Route: 058
     Dates: start: 20131113

REACTIONS (6)
  - Viral infection [Unknown]
  - Nasopharyngitis [Unknown]
  - Rash [Unknown]
  - Chest discomfort [Unknown]
  - Abdominal discomfort [Unknown]
  - Headache [Recovered/Resolved]
